FAERS Safety Report 13417559 (Version 1)
Quarter: 2017Q2

REPORT INFORMATION
  Report Type: Spontaneous
  Country: US (occurrence: US)
  Receive Date: 20170406
  Receipt Date: 20170406
  Transmission Date: 20170830
  Serious: Yes (Other)
  Sender: FDA-Public Use
  Company Number: US-LUNDBECK-DKLU2029036

PATIENT
  Age: 78 Year
  Sex: Male

DRUGS (1)
  1. NORTHERA [Suspect]
     Active Substance: DROXIDOPA
     Indication: PRODUCT USED FOR UNKNOWN INDICATION
     Dosage: SCHEDULE C
     Route: 065

REACTIONS (7)
  - Pacemaker generated rhythm [Unknown]
  - Arterial occlusive disease [Unknown]
  - Abdominal tenderness [Unknown]
  - Anaemia [Unknown]
  - Hypotension [Unknown]
  - Impaired gastric emptying [Unknown]
  - Drug dose omission [Unknown]

NARRATIVE: CASE EVENT DATE: 20170305
